FAERS Safety Report 13513000 (Version 1)
Quarter: 2017Q2

REPORT INFORMATION
  Report Type: Spontaneous
  Country: FR (occurrence: FR)
  Receive Date: 20170504
  Receipt Date: 20170504
  Transmission Date: 20170830
  Serious: Yes (Hospitalization)
  Sender: FDA-Public Use
  Company Number: FR-BIOGEN-2017BI00395448

PATIENT
  Age: 28 Year
  Sex: Female

DRUGS (3)
  1. TYSABRI [Suspect]
     Active Substance: NATALIZUMAB
     Indication: MULTIPLE SCLEROSIS
     Dosage: INFUSED OVER 1 HOUR
     Route: 042
     Dates: start: 20160927
  2. LAROXYL [Concomitant]
     Active Substance: AMITRIPTYLINE
     Indication: PRODUCT USED FOR UNKNOWN INDICATION
     Route: 065
  3. DAILY (LEVONORGESTREL AND ETHINYLESTRADIOL) [Concomitant]
     Indication: ORAL CONTRACEPTION
     Route: 048

REACTIONS (8)
  - Haemorrhoids [Unknown]
  - Erythema nodosum [Unknown]
  - Weight decreased [Unknown]
  - Vomiting [Unknown]
  - Arthralgia [Unknown]
  - Rash erythematous [Unknown]
  - Fatigue [Unknown]
  - Diarrhoea [Unknown]

NARRATIVE: CASE EVENT DATE: 20161007
